FAERS Safety Report 9725574 (Version 2)
Quarter: 2013Q4

REPORT INFORMATION
  Report Type: Spontaneous
  Country: PT (occurrence: FR)
  Receive Date: 20131203
  Receipt Date: 20131203
  Transmission Date: 20140711
  Serious: Yes (Other)
  Sender: FDA-Public Use
  Company Number: 2013SP002867

PATIENT
  Age: 29 Year
  Sex: Female

DRUGS (6)
  1. ZEBINIX (ESLICARBAZEPINE ACETATE) [Suspect]
     Indication: PRODUCT USED FOR UNKNOWN INDICATION
     Route: 048
     Dates: start: 20130926
  2. ZEBINIX (ESLICARBAZEPINE ACETATE) [Suspect]
     Indication: PRODUCT USED FOR UNKNOWN INDICATION
     Route: 048
     Dates: start: 201309
  3. ZEBINIX (ESLICARBAZEPINE ACETATE) [Suspect]
     Indication: PRODUCT USED FOR UNKNOWN INDICATION
     Route: 048
     Dates: start: 201308, end: 201309
  4. LAMICTAL [Concomitant]
     Indication: PRODUCT USED FOR UNKNOWN INDICATION
     Dates: start: 201308
  5. VIMPAT [Concomitant]
     Dates: end: 20131020
  6. ZONEGRAN [Suspect]
     Route: 048
     Dates: start: 20131021

REACTIONS (8)
  - Petit mal epilepsy [Recovered/Resolved]
  - Brain neoplasm [Unknown]
  - Haematoma [Unknown]
  - Confusional state [Unknown]
  - Headache [Unknown]
  - Vomiting [Recovered/Resolved]
  - Diplopia [Unknown]
  - Dizziness [Unknown]
